FAERS Safety Report 6899222-X (Version None)
Quarter: 2010Q3

REPORT INFORMATION
  Report Type: 
  Country: None (occurrence: None)
  Receive Date: 20100802
  Receipt Date: 20080313
  Transmission Date: 20110219
  Serious: Yes (Other)
  Sender: FDA-Public Use
  Company Number: US-PFIZER INC-2007108259

PATIENT
  Sex: Female

DRUGS (3)
  1. LYRICA [Suspect]
     Indication: NEURALGIA
     Route: 048
     Dates: start: 20071218, end: 20071218
  2. DARVOCET-N 100 [Concomitant]
     Route: 048
     Dates: start: 20070904
  3. CELEBREX [Concomitant]
     Route: 048
     Dates: start: 20070723

REACTIONS (3)
  - FEELING DRUNK [None]
  - HALLUCINATION [None]
  - HYPERHIDROSIS [None]
